FAERS Safety Report 11950812 (Version 1)
Quarter: 2016Q1

REPORT INFORMATION
  Report Type: Spontaneous
  Country: US (occurrence: US)
  Receive Date: 20160126
  Receipt Date: 20160126
  Transmission Date: 20160526
  Serious: No
  Sender: FDA-Public Use
  Company Number: US-PFIZER INC-2016038212

PATIENT
  Sex: Female

DRUGS (1)
  1. XELJANZ [Suspect]
     Active Substance: TOFACITINIB CITRATE
     Dosage: 5 MG, 2X/DAY
     Route: 048
     Dates: start: 201511

REACTIONS (7)
  - Erythema [Unknown]
  - Hot flush [Unknown]
  - Fatigue [Unknown]
  - Depressed mood [Unknown]
  - Hepatic enzyme abnormal [Unknown]
  - Musculoskeletal pain [Unknown]
  - Pain in extremity [Unknown]
